FAERS Safety Report 9251388 (Version 1)
Quarter: 2013Q1

REPORT INFORMATION
  Report Type: Spontaneous
  Country: US (occurrence: None)
  Receive Date: 20130305
  Receipt Date: 20130305
  Transmission Date: 20140127
  Serious: Yes (Other)
  Sender: FDA-Public Use
  Company Number: 163-21880-12082038

PATIENT
  Age: 73 Year
  Sex: Male
  Weight: 62.6 kg

DRUGS (9)
  1. REVLIMID [Suspect]
     Indication: PARAPROTEINAEMIA
     Dosage: 25MG, 21 IN 21 D, PO?7/21/2012 - TEMP. INTERRUPTED
     Route: 048
     Dates: start: 20120721
  2. HYDROCODONE/ACETAMINOPHEN (REMEDEINE) [Concomitant]
  3. SIMVASTATIN [Concomitant]
  4. ACETAMINOPHEN (PARACETAMOL) [Concomitant]
  5. ASPIR-81 (ACETYLSALICYLIC ACID) [Concomitant]
  6. FOSAMAX (ALENDRONATE SODIUM) [Concomitant]
  7. METFORMIN HCL (METFORMIN HYDROCHLORIDE) [Concomitant]
  8. METOPROLOL TARTRATE (METOPROLOL TARTRATE) (TABLETS) (METOPROLOL TARTRATE) [Concomitant]
  9. OMEPRAZOLE (OMEPRAZOLE) [Concomitant]

REACTIONS (3)
  - Local swelling [None]
  - Dry skin [None]
  - White blood cell count decreased [None]
